FAERS Safety Report 8956128 (Version 3)
Quarter: 2013Q2

REPORT INFORMATION
  Report Type: Spontaneous
  Country: JP (occurrence: JP)
  Receive Date: 20121210
  Receipt Date: 20130426
  Transmission Date: 20140414
  Serious: Yes (Other)
  Sender: FDA-Public Use
  Company Number: PHHY2012JP112278

PATIENT
  Sex: Male
  Weight: 3 kg

DRUGS (5)
  1. DOXORUBICIN [Suspect]
     Dosage: (MATERNAL DOSE: 74 MG)
     Route: 064
  2. VINCRISTINE SULFATE [Suspect]
     Dosage: MATERNAL DOSE: 74 MG
     Route: 064
  3. PREDNISOLONE [Suspect]
     Dosage: MATERNAL DOSE: 80 MG
     Route: 064
  4. RITUXIMAB [Suspect]
     Dosage: MATERNAL DOSE: 560 MG
     Route: 064
  5. CYCLOPHOSPHAMIDE [Suspect]
     Dosage: MATERNAL DOSE: 1120 MG
     Route: 064

REACTIONS (2)
  - B-lymphocyte count decreased [Recovered/Resolved]
  - Foetal exposure during pregnancy [Unknown]
